FAERS Safety Report 10093662 (Version 1)
Quarter: 2014Q2

REPORT INFORMATION
  Report Type: Spontaneous
  Country: US (occurrence: US)
  Receive Date: 20140421
  Receipt Date: 20140421
  Transmission Date: 20141212
  Serious: No
  Sender: FDA-Public Use
  Company Number: US-SA-2013SA129794

PATIENT
  Age: 74 Year
  Sex: Female

DRUGS (3)
  1. ALLEGRA 24 HOUR [Suspect]
     Indication: RASH
     Dosage: TAKEN FROM: THURSDAY
     Route: 048
     Dates: start: 20131205
  2. CLARITIN [Suspect]
     Route: 065
     Dates: start: 20131210
  3. MECLIZINE [Concomitant]
     Indication: VERTIGO
     Dosage: DOSE- HALF TABLET, FREQUENCY- AS NEEDED, TAKEN FROM- YEARS AGO
     Route: 065

REACTIONS (2)
  - Epistaxis [Recovering/Resolving]
  - Dizziness [Not Recovered/Not Resolved]
